FAERS Safety Report 9735120 (Version 2)
Quarter: 2014Q1

REPORT INFORMATION
  Report Type: Spontaneous
  Country: DK (occurrence: FR)
  Receive Date: 20131206
  Receipt Date: 20140205
  Transmission Date: 20141002
  Serious: Yes (Death)
  Sender: FDA-Public Use
  Company Number: FR-FRI-1000051902

PATIENT
  Age: 40 Year
  Sex: Male
  Weight: 120 kg

DRUGS (11)
  1. ESCITALOPRAM [Suspect]
     Indication: DEPRESSION
     Dosage: 1 DF
     Route: 048
     Dates: start: 20130514
  2. METHADONE [Suspect]
     Dosage: 1 DF
  3. TERCIAN [Concomitant]
     Dosage: 6 DF
     Route: 048
     Dates: start: 20130819
  4. VALDOXAN [Concomitant]
     Indication: DEPRESSION
     Dosage: 1 DF
     Route: 048
     Dates: start: 20130620
  5. NOCTAMIDE [Concomitant]
     Dosage: 1 DF
     Route: 048
     Dates: start: 20130524
  6. XANAX [Concomitant]
     Dosage: 6 DF
     Route: 048
     Dates: start: 20130819
  7. THERALENE [Concomitant]
     Dosage: 50 DF
     Route: 048
     Dates: start: 20130821
  8. NEULEPTIL [Concomitant]
     Dosage: 2 DF
     Dates: start: 20130615
  9. EFEXOR [Concomitant]
     Dosage: 1 DF
  10. CRESTOR [Concomitant]
     Dosage: 1 DF
  11. INEXIUM [Concomitant]
     Dosage: 1 DF

REACTIONS (2)
  - Sudden death [Fatal]
  - Labelled drug-drug interaction medication error [Fatal]
